FAERS Safety Report 17491236 (Version 2)
Quarter: 2020Q1

REPORT INFORMATION
  Report Type: Spontaneous
  Country: US (occurrence: US)
  Receive Date: 20200304
  Receipt Date: 20200312
  Transmission Date: 20200409
  Serious: Yes (Death, Life-Threatening, Hospitalization, Other)
  Sender: FDA-Public Use
  Company Number: US-AUROBINDO-AUR-APL-2020-010243

PATIENT
  Age: 18 Year
  Sex: Female

DRUGS (1)
  1. PARACETAMOL TABLET 500MG [Suspect]
     Active Substance: ACETAMINOPHEN
     Indication: PRODUCT USED FOR UNKNOWN INDICATION
     Dosage: 48 DOSAGE FORM IN TOTAL (24-GRAM TOTAL DOSE)
     Route: 048

REACTIONS (12)
  - Drug-induced liver injury [Fatal]
  - Somnolence [Unknown]
  - Back pain [Unknown]
  - Mental status changes [Unknown]
  - Aphasia [Unknown]
  - Seizure [Unknown]
  - Brain oedema [Unknown]
  - Blood glucose decreased [Unknown]
  - Toxicity to various agents [Unknown]
  - Acute hepatic failure [Fatal]
  - Tachycardia [Unknown]
  - Intentional overdose [Fatal]
